FAERS Safety Report 19096575 (Version 1)
Quarter: 2021Q2

REPORT INFORMATION
  Report Type: Spontaneous
  Country: US (occurrence: US)
  Receive Date: 20210405
  Receipt Date: 20210405
  Transmission Date: 20210717
  Serious: No
  Sender: FDA-Public Use
  Company Number: None

PATIENT
  Age: 71 Year
  Sex: Male
  Weight: 90 kg

DRUGS (13)
  1. CRANBERRY EXTRACT [Concomitant]
     Active Substance: CRANBERRY
  2. FLOMAX [Concomitant]
     Active Substance: TAMSULOSIN HYDROCHLORIDE
  3. VALTREX [Concomitant]
     Active Substance: VALACYCLOVIR HYDROCHLORIDE
  4. MAGNESIUM [Concomitant]
     Active Substance: MAGNESIUM
  5. ELIQUIS [Concomitant]
     Active Substance: APIXABAN
  6. LOVASTATIN. [Concomitant]
     Active Substance: LOVASTATIN
  7. COENZYME Q10 [Concomitant]
     Active Substance: DIETARY SUPPLEMENT\UBIDECARENONE
  8. PRILOSEC [Concomitant]
     Active Substance: OMEPRAZOLE MAGNESIUM
  9. FOLIC ACID. [Concomitant]
     Active Substance: FOLIC ACID
  10. ROPINIROLE. [Concomitant]
     Active Substance: ROPINIROLE
  11. LYRICA [Concomitant]
     Active Substance: PREGABALIN
  12. JAKAFI [Suspect]
     Active Substance: RUXOLITINIB
     Indication: POLYCYTHAEMIA VERA
     Route: 048
  13. COLCRYS [Concomitant]
     Active Substance: COLCHICINE

REACTIONS (2)
  - Restless legs syndrome [None]
  - Gout [None]
